FAERS Safety Report 11855402 (Version 1)
Quarter: 2015Q4

REPORT INFORMATION
  Report Type: Spontaneous
  Country: KR (occurrence: KR)
  Receive Date: 20151221
  Receipt Date: 20151221
  Transmission Date: 20160305
  Serious: Yes (Other)
  Sender: FDA-Public Use
  Company Number: KR-UNITED THERAPEUTICS-UNT-2015-015957

PATIENT
  Sex: Female
  Weight: 1.7 kg

DRUGS (2)
  1. REMODULIN [Suspect]
     Active Substance: TREPROSTINIL
     Dosage: 0.025 ?G/KG, CONTINUING
     Route: 041
  2. REMODULIN [Suspect]
     Active Substance: TREPROSTINIL
     Indication: FOETAL EXPOSURE DURING PREGNANCY
     Dosage: 0.003 ?G/KG, CONTINUING
     Route: 041

REACTIONS (5)
  - Pallor [Recovering/Resolving]
  - Low birth weight baby [Unknown]
  - Respiratory distress [Unknown]
  - Crying [Recovering/Resolving]
  - Foetal exposure during pregnancy [Unknown]
